FAERS Safety Report 5338907-3 (Version None)
Quarter: 2007Q2

REPORT INFORMATION
  Report Type: 
  Country: None (occurrence: None)
  Receive Date: 20070404
  Receipt Date: 20061003
  Transmission Date: 20071010
  Serious: Yes (Other)
  Sender: FDA-Public Use
  Company Number: HQWYE551104OCT06

PATIENT
  Age: 61 Year
  Sex: Female
  Weight: 63.56 kg

DRUGS (4)
  1. ALAVERT [Suspect]
     Indication: EYE PRURITUS
     Dosage: 1 TABLET ONCE, ORAL
     Route: 048
     Dates: start: 20061002, end: 20061002
  2. ALAVERT [Suspect]
     Indication: LACRIMATION INCREASED
     Dosage: 1 TABLET ONCE, ORAL
     Route: 048
     Dates: start: 20061002, end: 20061002
  3. ALAVERT [Suspect]
     Indication: RHINORRHOEA
     Dosage: 1 TABLET ONCE, ORAL
     Route: 048
     Dates: start: 20061002, end: 20061002
  4. ALAVERT [Suspect]
     Indication: SNEEZING
     Dosage: 1 TABLET ONCE, ORAL
     Route: 048
     Dates: start: 20061002, end: 20061002

REACTIONS (1)
  - RASH PRURITIC [None]
